FAERS Safety Report 12488814 (Version 2)
Quarter: 2016Q3

REPORT INFORMATION
  Report Type: Spontaneous
  Country: US (occurrence: US)
  Receive Date: 20160622
  Receipt Date: 20160725
  Transmission Date: 20161109
  Serious: Yes (Hospitalization, Other)
  Sender: FDA-Public Use
  Company Number: US-SMITH AND NEPHEW, INC-2016SMT00527

PATIENT
  Age: 83 Year
  Sex: Male
  Weight: 65.76 kg

DRUGS (22)
  1. GUAIFENESIN DEXTROMETHORPHAN [Concomitant]
     Dosage: 5 ML, 6X/DAY, AS NEEDED
  2. LEVOTHYROXINE. [Concomitant]
     Active Substance: LEVOTHYROXINE
     Dosage: 100 ?G, 1X/DAY
     Route: 048
  3. SACCHAROMYCES BOULARDII [Concomitant]
     Active Substance: SACCHAROMYCES CEREVISIAE
     Dosage: 250 MG, 2X/DAY
     Route: 048
  4. NOVOLOG [Concomitant]
     Active Substance: INSULIN ASPART
     Dosage: 4 UNK, 3X/DAY
  5. AMIODARONE [Concomitant]
     Active Substance: AMIODARONE
     Dosage: 200 MG, 1X/DAY
     Route: 048
  6. HYDROXYZINE [Concomitant]
     Active Substance: HYDROXYZINE\HYDROXYZINE HYDROCHLORIDE
     Dosage: 25 MG, 2X/DAY, AS NEEDED
  7. CYANOCOBALAMIN. [Concomitant]
     Active Substance: CYANOCOBALAMIN
     Dosage: 1000 ?G, 1X/DAY
     Route: 048
  8. LANTUS [Concomitant]
     Active Substance: INSULIN GLARGINE
     Dosage: 10 U, 1X/DAY
     Route: 058
  9. COUMADIN [Concomitant]
     Active Substance: WARFARIN SODIUM
     Dosage: 2 MG, 1X/DAY
     Route: 048
  10. ASPIRIN. [Concomitant]
     Active Substance: ASPIRIN
     Dosage: 81 MG, 1X/DAY
     Route: 048
  11. PANTOPRAZOLE [Concomitant]
     Active Substance: PANTOPRAZOLE SODIUM
     Dosage: 40 MG, 2X/DAY
     Route: 048
  12. REGRANEX [Suspect]
     Active Substance: BECAPLERMIN
     Indication: WOUND
     Dosage: UNK UNK, 2X/DAY
     Route: 061
     Dates: start: 201603, end: 201603
  13. NOVOLOG [Concomitant]
     Active Substance: INSULIN ASPART
     Dosage: UNK, 4X/DAY, SLIDING SCALE
     Route: 058
  14. ACETAMINOPHEN. [Concomitant]
     Active Substance: ACETAMINOPHEN
     Dosage: 650 MG, 4X/DAY, AS NEEDED
     Route: 048
  15. ALBUTEROL. [Concomitant]
     Active Substance: ALBUTEROL
     Dosage: UNK, 6X/DAY, AS NEEDED
  16. ALBUTEROL. [Concomitant]
     Active Substance: ALBUTEROL
     Dosage: 180 ?G, 4X/DAY, AS NEEDED
  17. FOLIC ACID. [Concomitant]
     Active Substance: FOLIC ACID
     Dosage: 400 ?G, 1X/DAY
     Route: 048
  18. COLLAGENASE SANTYL [Suspect]
     Active Substance: COLLAGENASE CLOSTRIDIUM HISTOLYTICUM
     Indication: WOUND
  19. ATORVASTATIN [Concomitant]
     Active Substance: ATORVASTATIN
     Dosage: 10 MG, 1X/DAY
     Route: 048
  20. MULTIVITAMIN, STRESS FORMULA-ZINC [Concomitant]
     Dosage: 1 TABLETS, 1X/DAY
     Route: 048
  21. BISACODYL. [Concomitant]
     Active Substance: BISACODYL
     Dosage: UNK
  22. MAGNESIUM OXIDE. [Concomitant]
     Active Substance: MAGNESIUM OXIDE
     Dosage: 400 MG, 2X/DAY
     Route: 048

REACTIONS (24)
  - Mobility decreased [None]
  - Penile oedema [Unknown]
  - Gangrene [Recovered/Resolved with Sequelae]
  - Catheter site haemorrhage [Unknown]
  - Arteriosclerosis [Unknown]
  - Malnutrition [Unknown]
  - Leg amputation [Recovered/Resolved with Sequelae]
  - Surgery [Unknown]
  - Anaemia postoperative [Unknown]
  - Chronic obstructive pulmonary disease [Unknown]
  - Application site necrosis [Recovered/Resolved with Sequelae]
  - Decubitus ulcer [Unknown]
  - Intracardiac thrombus [Unknown]
  - Wound complication [Recovered/Resolved with Sequelae]
  - Inadequate diet [Unknown]
  - Transfusion [Unknown]
  - Inappropriate schedule of drug administration [Unknown]
  - Urinary retention [Unknown]
  - Angiopathy [Unknown]
  - Lung infiltration [Unknown]
  - Urinary tract obstruction [Unknown]
  - Chronic kidney disease [Unknown]
  - Stent placement [Unknown]
  - Congestive cardiomyopathy [Unknown]

NARRATIVE: CASE EVENT DATE: 201603
